FAERS Safety Report 23946931 (Version 2)
Quarter: 2024Q2

REPORT INFORMATION
  Report Type: Spontaneous
  Country: IL (occurrence: IL)
  Receive Date: 20240606
  Receipt Date: 20240621
  Transmission Date: 20240716
  Serious: Yes (Death, Other)
  Sender: FDA-Public Use
  Company Number: IL-TEVA-VS-3205888

PATIENT
  Age: 31 Year
  Sex: Female

DRUGS (2)
  1. HYDROCORTISONE [Suspect]
     Active Substance: HYDROCORTISONE\HYDROCORTISONE ACETATE
     Indication: Cytokine release syndrome
     Route: 065
     Dates: start: 2021
  2. LYMPHOCYTES [Suspect]
     Active Substance: LYMPHOCYTES
     Indication: Triple negative breast cancer
     Dosage: INFUSION
     Route: 065
     Dates: start: 202111

REACTIONS (3)
  - Drug interaction [Fatal]
  - Breast cancer recurrent [Fatal]
  - Therapeutic product effect decreased [Fatal]
